FAERS Safety Report 22399102 (Version 1)
Quarter: 2023Q2

REPORT INFORMATION
  Report Type: Other
  Country: US (occurrence: None)
  Receive Date: 20230602
  Receipt Date: 20230602
  Transmission Date: 20230721
  Serious: Yes (Hospitalization)
  Sender: FDA-Public Use
  Company Number: US-ROCHE-3358494

PATIENT
  Age: 81 Year
  Sex: Male

DRUGS (2)
  1. AVASTIN [Suspect]
     Active Substance: BEVACIZUMAB
     Indication: Gastrointestinal haemorrhage
     Dosage: FORM OF ADMIN: VIAL?INFUSE 450MG INTRAVENOUSLY EVERY 28 DAYS
     Route: 042
  2. AVASTIN [Suspect]
     Active Substance: BEVACIZUMAB
     Dosage: FORM OF ADMIN: VIAL?INFUSE 450 MG INTRAVENOUSLY EVERY 28 DAYS
     Route: 042

REACTIONS (1)
  - Haemorrhage [Unknown]
